FAERS Safety Report 9166239 (Version 2)
Quarter: 2013Q1

REPORT INFORMATION
  Report Type: Report from Study
  Country: US (occurrence: US)
  Receive Date: 20130315
  Receipt Date: 20130327
  Transmission Date: 20140127
  Serious: Yes (Hospitalization, Other)
  Sender: FDA-Public Use
  Company Number: US-PFIZER INC-2013061837

PATIENT
  Age: 62 Year
  Sex: Male
  Weight: 80.91 kg

DRUGS (9)
  1. BOSUTINIB [Suspect]
     Indication: GLIOBLASTOMA
     Dosage: 400 MG, 1X/DAY
     Route: 048
     Dates: start: 20130208, end: 20130212
  2. ALPRAZOLAM [Concomitant]
     Dosage: 0.5 MG, 2X/DAY
     Route: 048
  3. DEPAKOTE [Concomitant]
     Dosage: 500 MG, 2X/DAY
     Route: 048
  4. KEPPRA [Concomitant]
     Dosage: 1500 MG, 2X/DAY
  5. OMEPRAZOLE [Concomitant]
     Dosage: 20 MG, 1X/DAY
     Route: 048
  6. SERTRALINE [Concomitant]
     Dosage: 50 MG, 1X/DAY
     Route: 048
  7. ONDANSETRON [Concomitant]
     Indication: NAUSEA
     Dosage: 8 MG, 3X/DAY EVERY 8 HOURS AS NEEDED
     Route: 048
  8. FLUTICASONE [Concomitant]
     Indication: HYPERSENSITIVITY
     Dosage: 2 DF DAILY, AS NEEDED
     Route: 045
  9. SENNA [Concomitant]
     Dosage: 2 DF, 2X/DAY
     Route: 048

REACTIONS (1)
  - Cellulitis [Recovered/Resolved]
